FAERS Safety Report 5765419-5 (Version None)
Quarter: 2008Q2

REPORT INFORMATION
  Report Type: 
  Country: None (occurrence: None)
  Receive Date: 20080611
  Receipt Date: 20080611
  Transmission Date: 20081010
  Serious: Yes (Other)
  Sender: FDA-Public Use
  Company Number: A0732341A

PATIENT
  Age: 31 Year
  Sex: Female

DRUGS (2)
  1. ALLI [Suspect]
  2. NO CONCURRENT MEDICATION [Concomitant]

REACTIONS (4)
  - ANAL HAEMORRHAGE [None]
  - HAEMORRHAGE [None]
  - RECTAL DISCHARGE [None]
  - RED BLOOD CELL COUNT INCREASED [None]
